FAERS Safety Report 11836114 (Version 1)
Quarter: 2015Q4

REPORT INFORMATION
  Report Type: Spontaneous
  Country: FR (occurrence: FR)
  Receive Date: 20151215
  Receipt Date: 20151215
  Transmission Date: 20160305
  Serious: Yes (Death, Congenital Anomaly)
  Sender: FDA-Public Use
  Company Number: FR-BIOGEN-2015BI160372

PATIENT

DRUGS (1)
  1. TYSABRI [Suspect]
     Active Substance: NATALIZUMAB
     Indication: MATERNAL EXPOSURE TIMING UNSPECIFIED
     Route: 064
     Dates: end: 20150707

REACTIONS (4)
  - Foetal cystic hygroma [Not Recovered/Not Resolved]
  - Foetal exposure timing unspecified [Recovered/Resolved]
  - Dwarfism [Not Recovered/Not Resolved]
  - Foetal malformation [Not Recovered/Not Resolved]
